FAERS Safety Report 22121100 (Version 1)
Quarter: 2023Q1

REPORT INFORMATION
  Report Type: Spontaneous
  Country: US (occurrence: US)
  Receive Date: 20230321
  Receipt Date: 20230321
  Transmission Date: 20230418
  Serious: Yes (Other)
  Sender: FDA-Public Use
  Company Number: US-PFIZER INC-202300119011

PATIENT
  Age: 70 Year
  Sex: Female

DRUGS (4)
  1. NURTEC ODT [Suspect]
     Active Substance: RIMEGEPANT SULFATE
     Indication: Migraine
     Dosage: UNK
     Dates: start: 20230308
  2. NURTEC ODT [Suspect]
     Active Substance: RIMEGEPANT SULFATE
     Dosage: ONE DOSE
     Dates: start: 20230310, end: 20230310
  3. NURTEC ODT [Suspect]
     Active Substance: RIMEGEPANT SULFATE
     Dosage: ONE DOSE
     Dates: start: 20230312, end: 20230312
  4. NURTEC ODT [Suspect]
     Active Substance: RIMEGEPANT SULFATE
     Dosage: ONE DOSE
     Dates: start: 20230315, end: 20230315

REACTIONS (7)
  - Suicidal ideation [Not Recovered/Not Resolved]
  - Disease recurrence [Unknown]
  - Depression [Unknown]
  - Drug ineffective [Unknown]
  - Abnormal behaviour [Unknown]
  - Insomnia [Unknown]
  - Hypoacusis [Unknown]

NARRATIVE: CASE EVENT DATE: 20230301
